FAERS Safety Report 13029674 (Version 3)
Quarter: 2017Q1

REPORT INFORMATION
  Report Type: Spontaneous
  Country: DE (occurrence: DE)
  Receive Date: 20161215
  Receipt Date: 20170315
  Transmission Date: 20170428
  Serious: Yes (Other)
  Sender: FDA-Public Use
  Company Number: DE-AUROBINDO-AUR-APL-2016-15481

PATIENT
  Age: 76 Year
  Sex: Male

DRUGS (2)
  1. FLECAINIDE PUREN TABLETS [Suspect]
     Active Substance: FLECAINIDE
     Indication: ATRIAL FIBRILLATION
     Dosage: UNK
     Route: 048
  2. BISOBETA [Concomitant]
     Indication: ATRIAL FIBRILLATION
     Dosage: 1 TAB DAILY
     Route: 048

REACTIONS (5)
  - Drug ineffective [Unknown]
  - Atrial fibrillation [Recovered/Resolved]
  - Throat tightness [Recovered/Resolved]
  - Dizziness [Recovered/Resolved]
  - Nausea [Recovered/Resolved]

NARRATIVE: CASE EVENT DATE: 201609
